FAERS Safety Report 13466380 (Version 1)
Quarter: 2017Q2

REPORT INFORMATION
  Report Type: Spontaneous
  Country: CA (occurrence: US)
  Receive Date: 20170421
  Receipt Date: 20170421
  Transmission Date: 20170830
  Serious: Yes (Hospitalization)
  Sender: FDA-Public Use
  Company Number: CA-009507513-1704USA006393

PATIENT
  Age: 80 Year

DRUGS (2)
  1. ZOSTAVAX [Suspect]
     Active Substance: VARICELLA-ZOSTER VIRUS STRAIN OKA/MERCK LIVE ANTIGEN
     Indication: PROPHYLAXIS
  2. STERILE DILUENT [Suspect]
     Active Substance: WATER
     Dosage: UNK

REACTIONS (1)
  - Herpes zoster [Unknown]
